FAERS Safety Report 11056752 (Version 2)
Quarter: 2015Q2

REPORT INFORMATION
  Report Type: Spontaneous
  Country: US (occurrence: US)
  Receive Date: 20150422
  Receipt Date: 20150524
  Transmission Date: 20150821
  Serious: No
  Sender: FDA-Public Use
  Company Number: US-JNJFOC-20140112200

PATIENT
  Sex: Female
  Weight: 95.26 kg

DRUGS (4)
  1. METFORMIN [Concomitant]
     Active Substance: METFORMIN HYDROCHLORIDE
     Indication: TYPE 2 DIABETES MELLITUS
     Dosage: AM
     Route: 050
  2. METFORMIN [Concomitant]
     Active Substance: METFORMIN HYDROCHLORIDE
     Indication: TYPE 2 DIABETES MELLITUS
     Dosage: PM
     Route: 050
  3. INVOKANA [Suspect]
     Active Substance: CANAGLIFLOZIN
     Indication: TYPE 2 DIABETES MELLITUS
     Route: 048
     Dates: start: 201309
  4. BYDUREON [Concomitant]
     Active Substance: EXENATIDE
     Indication: TYPE 2 DIABETES MELLITUS
     Dates: start: 2013

REACTIONS (2)
  - Inappropriate schedule of drug administration [Unknown]
  - Off label use [Unknown]
